FAERS Safety Report 4971754-0 (Version None)
Quarter: 2006Q2

REPORT INFORMATION
  Report Type: 
  Country: None (occurrence: None)
  Receive Date: 20060413
  Receipt Date: 20050705
  Transmission Date: 20061013
  Serious: Yes (Hospitalization, Other)
  Sender: FDA-Public Use
  Company Number: 200515608US

PATIENT
  Sex: Female
  Weight: 74.09 kg

DRUGS (9)
  1. ARAVA [Suspect]
     Route: 048
     Dates: start: 20040801, end: 20050701
  2. METAMFETAMINE [Suspect]
  3. METHOTREXATE [Suspect]
     Indication: RHEUMATOID ARTHRITIS
     Dosage: DOSE: UNKNOWN
     Dates: end: 20050401
  4. ADVIL [Concomitant]
     Dosage: DOSE: UNKNOWN
  5. TYLENOL (CAPLET) [Concomitant]
     Dosage: DOSE: NOT PROVIDED
  6. OMEPRAZOLE [Concomitant]
     Dosage: DOSE: UNKNOWN
  7. TRAMADOL [Concomitant]
     Dosage: DOSE: UNK
  8. ZYRTEC [Concomitant]
     Dosage: DOSE: UNK
  9. ALDACTONE [Concomitant]
     Dosage: DOSE: UNK

REACTIONS (27)
  - ABDOMINAL DISTENSION [None]
  - ALANINE AMINOTRANSFERASE INCREASED [None]
  - ANAEMIA [None]
  - ASCITES [None]
  - ASPARTATE AMINOTRANSFERASE INCREASED [None]
  - BLOOD CALCIUM DECREASED [None]
  - BLOOD GLUCOSE INCREASED [None]
  - BLOOD SODIUM DECREASED [None]
  - CARDIOMYOPATHY [None]
  - CONGESTIVE CARDIOMYOPATHY [None]
  - COUGH [None]
  - CULTURE URINE POSITIVE [None]
  - DRUG SCREEN POSITIVE [None]
  - DYSPNOEA [None]
  - GASTROOESOPHAGEAL REFLUX DISEASE [None]
  - GENERALISED OEDEMA [None]
  - HAEMOPTYSIS [None]
  - HEPATIC FAILURE [None]
  - HEPATIC NECROSIS [None]
  - HEPATIC STEATOSIS [None]
  - HEPATOTOXICITY [None]
  - INTERNATIONAL NORMALISED RATIO DECREASED [None]
  - LIVER DISORDER [None]
  - MOUTH ULCERATION [None]
  - OEDEMA PERIPHERAL [None]
  - PLEURAL EFFUSION [None]
  - SKIN EXFOLIATION [None]
